FAERS Safety Report 21512447 (Version 1)
Quarter: 2022Q4

REPORT INFORMATION
  Report Type: Other
  Country: IT (occurrence: None)
  Receive Date: 20221027
  Receipt Date: 20221027
  Transmission Date: 20230112
  Serious: Yes (Other)
  Sender: FDA-Public Use
  Company Number: IT-ROCHE-3206623

PATIENT
  Age: 91 Year
  Sex: Female

DRUGS (7)
  1. RITUXIMAB [Suspect]
     Active Substance: RITUXIMAB
     Indication: Pemphigoid
     Route: 041
  2. TOZINAMERAN [Suspect]
     Active Substance: TOZINAMERAN
     Indication: COVID-19 prophylaxis
     Route: 065
  3. PREDNISONE [Concomitant]
     Active Substance: PREDNISONE
  4. PREDNISONE [Concomitant]
     Active Substance: PREDNISONE
     Route: 048
  5. CLOBETASOL PROPIONATE [Concomitant]
     Active Substance: CLOBETASOL PROPIONATE
  6. METHYLPREDNISOLONE [Concomitant]
     Active Substance: METHYLPREDNISOLONE
     Dosage: FOR 3 CONSECUTIVE DAY
     Route: 042
  7. AZATHIOPRINE [Concomitant]
     Active Substance: AZATHIOPRINE

REACTIONS (3)
  - Pemphigoid [Recovering/Resolving]
  - Herpes zoster [Unknown]
  - Drug resistance [Unknown]
